FAERS Safety Report 7357381-9 (Version None)
Quarter: 2011Q1

REPORT INFORMATION
  Report Type: 
  Country: None (occurrence: None)
  Receive Date: 20110307
  Receipt Date: 20101110
  Transmission Date: 20110831
  Serious: No
  Sender: FDA-Public Use
  Company Number: AEUSA201000422

PATIENT
  Age: 48 Year
  Sex: Male

DRUGS (3)
  1. ADVAIR DISKUS 100/50 [Concomitant]
  2. PROLASTIN-C [Suspect]
     Indication: ALPHA-1 ANTI-TRYPSIN DEFICIENCY
     Dosage: 60 MG/KG;QW;IV
     Route: 042
  3. ALBUTEROL [Concomitant]

REACTIONS (5)
  - HEADACHE [None]
  - PYREXIA [None]
  - VIRAL INFECTION [None]
  - ABDOMINAL PAIN UPPER [None]
  - DIARRHOEA [None]
